FAERS Safety Report 8916023 (Version 1)
Quarter: 2012Q4

REPORT INFORMATION
  Report Type: 
  Country: US (occurrence: US)
  Receive Date: 20121119
  Receipt Date: 20121119
  Transmission Date: 20130627
  Serious: Yes (Hospitalization, Other)
  Sender: FDA-Public Use
  Company Number: US-VERTEX PHARMACEUTICAL INC.-2012-024757

PATIENT
  Age: 63 Year
  Sex: Male

DRUGS (3)
  1. VX-950 (TELAPREVIR) [Suspect]
     Indication: HEPATITIS C
     Dosage: 750 mg, tid
     Route: 048
     Dates: start: 20120828
  2. RIBAPAK [Suspect]
     Indication: HEPATITIS C
     Dosage: 600 mg, qd
     Route: 048
     Dates: start: 20120828
  3. PEGASYS [Suspect]
     Indication: HEPATITIS C
     Dosage: UNK
     Route: 058
     Dates: start: 20120828

REACTIONS (2)
  - Anaemia [Unknown]
  - Dysgeusia [Unknown]
